FAERS Safety Report 11500731 (Version 4)
Quarter: 2016Q4

REPORT INFORMATION
  Report Type: Report from Study
  Country: US (occurrence: US)
  Receive Date: 20150914
  Receipt Date: 20161118
  Transmission Date: 20170206
  Serious: Yes (Hospitalization, Other)
  Sender: FDA-Public Use
  Company Number: US-AEGERION-AEGR000426

PATIENT
  Age: 62 Year
  Sex: Female
  Weight: 85.71 kg

DRUGS (5)
  1. JUXTAPID [Suspect]
     Active Substance: LOMITAPIDE MESYLATE
     Dosage: 5 MG, QD
     Route: 048
     Dates: start: 20140217, end: 20141026
  2. JUXTAPID [Suspect]
     Active Substance: LOMITAPIDE MESYLATE
     Dosage: 10 MG, QD
     Route: 048
     Dates: start: 20141027
  3. JUXTAPID [Suspect]
     Active Substance: LOMITAPIDE MESYLATE
     Indication: TYPE IIA HYPERLIPIDAEMIA
     Dosage: 5 MG, QD
     Route: 048
     Dates: start: 201301, end: 20140206
  4. CRESTOR [Concomitant]
     Active Substance: ROSUVASTATIN CALCIUM
     Indication: LIPIDS INCREASED
     Dosage: 20 MG, QD
     Route: 048
  5. ZETIA [Concomitant]
     Active Substance: EZETIMIBE
     Indication: LIPIDS INCREASED
     Dosage: 10 MG, QD
     Route: 048

REACTIONS (17)
  - Abdominal pain upper [Not Recovered/Not Resolved]
  - Influenza [Recovered/Resolved]
  - Abdominal pain [Unknown]
  - Small intestinal obstruction [Recovered/Resolved]
  - Gastroenteritis viral [Unknown]
  - Therapy cessation [Recovered/Resolved]
  - Intussusception [Recovered/Resolved]
  - Small intestine carcinoma [Recovering/Resolving]
  - Muscle spasms [Unknown]
  - Abdominal discomfort [Unknown]
  - Vomiting [Unknown]
  - Infection [Recovering/Resolving]
  - Arteriosclerosis [Unknown]
  - Abdominal distension [Not Recovered/Not Resolved]
  - Umbilical hernia [Unknown]
  - Nausea [Unknown]
  - Discomfort [Recovering/Resolving]

NARRATIVE: CASE EVENT DATE: 201301
